FAERS Safety Report 4321173-5 (Version None)
Quarter: 2004Q1

REPORT INFORMATION
  Report Type: 
  Country: None (occurrence: None)
  Receive Date: 20040322
  Receipt Date: 20040318
  Transmission Date: 20041129
  Serious: Yes (Hospitalization)
  Sender: FDA-Public Use
  Company Number: WAES 0403USA01670

PATIENT

DRUGS (1)
  1. PRINIVIL [Suspect]
     Indication: HYPERTENSION
     Route: 048

REACTIONS (1)
  - FOREIGN BODY ASPIRATION [None]
